FAERS Safety Report 8145585-7 (Version None)
Quarter: 2012Q1

REPORT INFORMATION
  Report Type: 
  Country: None (occurrence: None)
  Receive Date: 20120217
  Receipt Date: 20110309
  Transmission Date: 20120608
  Serious: No
  Sender: FDA-Public Use
  Company Number: US-ABBOTT-11P-163-0710173-00

PATIENT
  Sex: Male
  Weight: 81.72 kg

DRUGS (5)
  1. SIMCOR [Suspect]
     Indication: CEREBROVASCULAR ACCIDENT
     Dosage: 1000/40MG; AT HOUR OF SLEEP
     Dates: start: 20100101
  2. ZYRTEC [Suspect]
     Indication: PRURITUS
  3. UNKNOWN CREAM [Concomitant]
     Indication: PRURITUS
  4. SIMCOR [Suspect]
     Indication: BLOOD CHOLESTEROL ABNORMAL
  5. ASPIRIN [Concomitant]
     Indication: PRODUCT USED FOR UNKNOWN INDICATION
     Dosage: AT HOUR OF SLEEP

REACTIONS (3)
  - SKIN BURNING SENSATION [None]
  - ERYTHEMA [None]
  - PRURITUS [None]
